FAERS Safety Report 7917345-0 (Version None)
Quarter: 2011Q4

REPORT INFORMATION
  Report Type: 
  Country: None (occurrence: None)
  Receive Date: 20111114
  Receipt Date: 20111104
  Transmission Date: 20120403
  Serious: Yes (Hospitalization)
  Sender: FDA-Public Use
  Company Number: 2011SP051972

PATIENT
  Age: 53 Year
  Sex: Female

DRUGS (7)
  1. INVEGA [Concomitant]
  2. AXIT [Concomitant]
  3. CLONAZEPAM [Concomitant]
  4. SERTRALINE HYDROCHLORIDE [Concomitant]
  5. ZYPREXA [Concomitant]
  6. DERALIN /00030001/ [Concomitant]
  7. SAPHRIS [Suspect]
     Indication: PRODUCT USED FOR UNKNOWN INDICATION

REACTIONS (4)
  - CONFUSIONAL STATE [None]
  - DIARRHOEA [None]
  - NAUSEA [None]
  - DEHYDRATION [None]
